FAERS Safety Report 17099796 (Version 1)
Quarter: 2019Q4

REPORT INFORMATION
  Report Type: Report from Study
  Country: US (occurrence: US)
  Receive Date: 20191202
  Receipt Date: 20191202
  Transmission Date: 20200122
  Serious: No
  Sender: FDA-Public Use
  Company Number: US-DOVA PHARMACEUTICALS INC.-DOV-000325

PATIENT
  Age: 72 Year
  Sex: Female

DRUGS (3)
  1. METFORMIN [Concomitant]
     Active Substance: METFORMIN HYDROCHLORIDE
     Indication: PRODUCT USED FOR UNKNOWN INDICATION
  2. DOPTELET [Suspect]
     Active Substance: AVATROMBOPAG MALEATE
     Indication: THROMBOCYTOPENIA
     Dosage: UNK
     Dates: start: 20190812
  3. DOPTELET [Suspect]
     Active Substance: AVATROMBOPAG MALEATE
     Dosage: 40 MG, QD
     Route: 048
     Dates: start: 20190821, end: 20190825

REACTIONS (5)
  - Flatulence [Unknown]
  - Pain in extremity [Recovered/Resolved]
  - Ear discomfort [Recovered/Resolved]
  - Diarrhoea [Recovering/Resolving]
  - Onychalgia [Recovered/Resolved]

NARRATIVE: CASE EVENT DATE: 20190824
